FAERS Safety Report 25604322 (Version 1)
Quarter: 2025Q3

REPORT INFORMATION
  Report Type: Spontaneous
  Country: US (occurrence: US)
  Receive Date: 20250725
  Receipt Date: 20250725
  Transmission Date: 20251021
  Serious: No
  Sender: LUPIN
  Company Number: US-LUPIN PHARMACEUTICALS INC.-2025-06557

PATIENT
  Age: 74 Year

DRUGS (3)
  1. QUETIAPINE [Suspect]
     Active Substance: QUETIAPINE
     Indication: Memory impairment
  2. QUETIAPINE [Suspect]
     Active Substance: QUETIAPINE
     Indication: Fatigue
  3. HYDROCHLOROTHIAZIDE [Concomitant]
     Active Substance: HYDROCHLOROTHIAZIDE
     Indication: Product used for unknown indication
     Dosage: 25 MILLIGRAM, QD, MORNING
     Route: 065

REACTIONS (2)
  - Drug dose omission by device [Unknown]
  - No adverse event [Unknown]
